FAERS Safety Report 7785671-4 (Version None)
Quarter: 2011Q3

REPORT INFORMATION
  Report Type: 
  Country: None (occurrence: None)
  Receive Date: 20110929
  Receipt Date: 20110929
  Transmission Date: 20111222
  Serious: No
  Sender: FDA-Public Use
  Company Number: None

PATIENT
  Age: 30 Year
  Sex: Male
  Weight: 81.646 kg

DRUGS (1)
  1. ALLI [Suspect]

REACTIONS (1)
  - LACTOSE INTOLERANCE [None]
